FAERS Safety Report 23896578 (Version 2)
Quarter: 2024Q3

REPORT INFORMATION
  Report Type: Spontaneous
  Country: US (occurrence: US)
  Receive Date: 20240524
  Receipt Date: 20240823
  Transmission Date: 20241017
  Serious: Yes (Death, Other)
  Sender: BRISTOL MYERS SQUIBB
  Company Number: US-BRISTOL-MYERS SQUIBB COMPANY-2024-081660

PATIENT
  Age: 63 Year
  Sex: Female

DRUGS (2)
  1. OPDIVO [Suspect]
     Active Substance: NIVOLUMAB
     Indication: Malignant connective tissue neoplasm
     Dosage: DOSE : OPDIVO 240 MG    FREQ : EVERY 3 WEEKS
     Route: 042
     Dates: start: 20240313
  2. YERVOY [Suspect]
     Active Substance: IPILIMUMAB
     Indication: Malignant connective tissue neoplasm
     Dosage: DOSE :YERVOY 80 MG;     FREQ : EVERY 3 WEEKS
     Route: 042
     Dates: start: 20240313

REACTIONS (2)
  - Death [Fatal]
  - Off label use [Unknown]

NARRATIVE: CASE EVENT DATE: 20240101
